FAERS Safety Report 8272305-8 (Version None)
Quarter: 2012Q2

REPORT INFORMATION
  Report Type: 
  Country: None (occurrence: None)
  Receive Date: 20120410
  Receipt Date: 20120326
  Transmission Date: 20120825
  Serious: Yes (Hospitalization, Disabling)
  Sender: FDA-Public Use
  Company Number: US-JUTA GMBH-2012-05567

PATIENT
  Age: 49 Year
  Sex: Male

DRUGS (2)
  1. METFORMIN HCL [Suspect]
     Indication: SUICIDE ATTEMPT
     Dosage: 52 G, SINGLE
     Route: 048
  2. GLYBURIDE [Suspect]
     Indication: SUICIDE ATTEMPT
     Dosage: 350 MG, SINGLE
     Route: 048

REACTIONS (9)
  - HYPOGLYCAEMIA [None]
  - INTENTIONAL OVERDOSE [None]
  - HYPOTENSION [None]
  - OTITIS EXTERNA [None]
  - RESPIRATORY DISTRESS [None]
  - RENAL FAILURE [None]
  - LACTIC ACIDOSIS [None]
  - HYPERGLYCAEMIA [None]
  - DEAFNESS NEUROSENSORY [None]
